FAERS Safety Report 8854933 (Version 1)
Quarter: 2012Q4

REPORT INFORMATION
  Report Type: Report from Study
  Country: CA (occurrence: CA)
  Receive Date: 20121023
  Receipt Date: 20121023
  Transmission Date: 20130627
  Serious: Yes (Other)
  Sender: FDA-Public Use
  Company Number: CA-JNJFOC-20121007477

PATIENT
  Sex: Female
  Weight: 74.9 kg

DRUGS (7)
  1. REMICADE [Suspect]
     Indication: CROHN^S DISEASE
     Route: 042
  2. REMICADE [Suspect]
     Indication: CROHN^S DISEASE
     Route: 042
     Dates: start: 20121011
  3. MURO-128 [Concomitant]
     Route: 065
  4. TYLENOL 3 [Concomitant]
     Route: 065
  5. IMODIUM [Concomitant]
     Route: 065
  6. OTHER NUTRIENTS [Concomitant]
     Route: 065
  7. SYNTHROID [Concomitant]
     Route: 065

REACTIONS (2)
  - Fall [Not Recovered/Not Resolved]
  - Skeletal injury [Not Recovered/Not Resolved]
